FAERS Safety Report 6195075 (Version 5)
Quarter: 2019Q1

REPORT INFORMATION
  Report Type: Spontaneous
  Country: JP (occurrence: JP)
  Receive Date: 20061220
  Receipt Date: 20190214
  Transmission Date: 20190418
  Serious: Yes (Death, Other)
  Sender: FDA-Public Use
  Company Number: PHBS2006JP19295

PATIENT
  Age: 85 Year
  Sex: Male

DRUGS (2)
  1. GLIVEC [Suspect]
     Active Substance: IMATINIB MESYLATE
     Indication: GASTROINTESTINAL STROMAL TUMOUR
     Dosage: 400 MG, QD
     Route: 048
     Dates: start: 20051004, end: 20051124
  2. TS-1 [Suspect]
     Active Substance: GIMERACIL\OTERACIL\TEGAFUR
     Indication: GASTRIC CANCER
     Dosage: 120 MG, QD
     Route: 048
     Dates: start: 20051004

REACTIONS (14)
  - Respiratory disorder [Fatal]
  - Pain in extremity [Unknown]
  - Pyrexia [Fatal]
  - Pulmonary congestion [Fatal]
  - Platelet count decreased [Unknown]
  - Blood lactate dehydrogenase increased [Unknown]
  - Oxygen saturation decreased [Fatal]
  - Blood creatinine increased [Unknown]
  - Interstitial lung disease [Fatal]
  - Pulmonary oedema [Fatal]
  - Condition aggravated [Fatal]
  - Blood urea increased [Unknown]
  - Diffuse alveolar damage [Fatal]
  - Pathological fracture [Unknown]

NARRATIVE: CASE EVENT DATE: 20051012
